FAERS Safety Report 9475980 (Version 1)
Quarter: 2013Q3

REPORT INFORMATION
  Report Type: Spontaneous
  Country: US (occurrence: US)
  Receive Date: 20130826
  Receipt Date: 20130826
  Transmission Date: 20140515
  Serious: Yes (Disabling, Other)
  Sender: FDA-Public Use
  Company Number: US-PFIZER INC-2013244657

PATIENT
  Age: 37 Year
  Sex: Male
  Weight: 167.8 kg

DRUGS (1)
  1. ARTHROTEC [Suspect]
     Indication: OSTEOARTHRITIS
     Dosage: 1 DF (200UG/75MG), 2X/DAY
     Route: 048
     Dates: start: 200707

REACTIONS (1)
  - Schizophrenia [Unknown]
